FAERS Safety Report 4681374-3 (Version None)
Quarter: 2005Q2

REPORT INFORMATION
  Report Type: 
  Country: None (occurrence: None)
  Receive Date: 20050601
  Receipt Date: 20050519
  Transmission Date: 20051028
  Serious: Yes (Other)
  Sender: FDA-Public Use
  Company Number: CIP05000818

PATIENT
  Age: 78 Year
  Sex: Female

DRUGS (2)
  1. ASACOL [Suspect]
     Indication: COLITIS
     Dosage: 2400 MG DAILY, ORAL
     Route: 048
     Dates: start: 20050101, end: 20050301
  2. ANTI-ASTHMATICS [Concomitant]

REACTIONS (3)
  - CARDIAC FAILURE CONGESTIVE [None]
  - RED BLOOD CELL COUNT DECREASED [None]
  - WHITE BLOOD CELL COUNT DECREASED [None]
